FAERS Safety Report 17998795 (Version 1)
Quarter: 2020Q3

REPORT INFORMATION
  Report Type: Spontaneous
  Country: US (occurrence: US)
  Receive Date: 20200709
  Receipt Date: 20200709
  Transmission Date: 20201103
  Serious: Yes (Other)
  Sender: FDA-Public Use
  Company Number: US-GLAXOSMITHKLINE-US2020124759

PATIENT
  Age: 68 Year

DRUGS (1)
  1. ZANTAC [Suspect]
     Active Substance: RANITIDINE HYDROCHLORIDE
     Dates: start: 19800115

REACTIONS (7)
  - Gastric cancer [Unknown]
  - Lung neoplasm malignant [Unknown]
  - Colorectal cancer [Unknown]
  - Gastrointestinal carcinoma [Unknown]
  - Pancreatic carcinoma [Unknown]
  - Bladder cancer [Unknown]
  - Renal cancer [Unknown]
